FAERS Safety Report 11635410 (Version 2)
Quarter: 2015Q4

REPORT INFORMATION
  Report Type: Spontaneous
  Country: JP (occurrence: JP)
  Receive Date: 20151016
  Receipt Date: 20151110
  Transmission Date: 20160304
  Serious: Yes (Other)
  Sender: FDA-Public Use
  Company Number: JP-ROCHE-1645981

PATIENT
  Age: 101 Year
  Sex: Male

DRUGS (1)
  1. DENOSINE [Suspect]
     Active Substance: GANCICLOVIR
     Indication: PRODUCT USED FOR UNKNOWN INDICATION
     Route: 041

REACTIONS (3)
  - Urinary retention [Unknown]
  - Renal impairment [Unknown]
  - Hydronephrosis [Unknown]
